FAERS Safety Report 12777018 (Version 1)
Quarter: 2016Q3

REPORT INFORMATION
  Report Type: Spontaneous
  Country: GB (occurrence: US)
  Receive Date: 20160923
  Receipt Date: 20160923
  Transmission Date: 20161109
  Serious: Yes (Hospitalization)
  Sender: FDA-Public Use
  Company Number: GB-AMNEAL PHARMACEUTICALS-2016AMN00621

PATIENT
  Age: 67 Year
  Sex: Female
  Weight: 92.18 kg

DRUGS (7)
  1. NAPROXEN. [Suspect]
     Active Substance: NAPROXEN
     Indication: OSTEOARTHRITIS
     Dosage: UNK
     Dates: start: 20090717, end: 20110630
  2. CITONEURIN [Concomitant]
     Active Substance: CYANOCOBALAMIN\PYRIDOXINE HYDROCHLORIDE\THIAMINE
     Dosage: UNK
     Dates: start: 20101110
  3. HYDROCHOLORTHIAZIDE [Concomitant]
     Dosage: UNK
     Dates: start: 2005
  4. DORFLEX [Concomitant]
     Active Substance: CAFFEINE\DIPYRONE\ORPHENADRINE
     Dosage: UNK
     Dates: start: 20120203
  5. INSULIN [Concomitant]
     Active Substance: INSULIN NOS
     Dosage: UNK
     Dates: start: 2006
  6. LOSARTAN. [Concomitant]
     Active Substance: LOSARTAN
     Dosage: UNK
     Dates: start: 20101213, end: 20120203
  7. METFORMIN [Concomitant]
     Active Substance: METFORMIN HYDROCHLORIDE
     Dosage: UNK
     Dates: start: 2008

REACTIONS (1)
  - Hypertensive crisis [Recovered/Resolved]
